FAERS Safety Report 7092902-5 (Version None)
Quarter: 2010Q4

REPORT INFORMATION
  Report Type: 
  Country: None (occurrence: None)
  Receive Date: 20101110
  Receipt Date: 20101104
  Transmission Date: 20110411
  Serious: Yes (Other)
  Sender: FDA-Public Use
  Company Number: US-PFIZER INC-2010121893

PATIENT
  Sex: Female
  Weight: 62.132 kg

DRUGS (2)
  1. AROMASIN [Suspect]
     Indication: BREAST CANCER
     Dosage: 25 MG, DAILY
     Route: 048
     Dates: start: 20100802
  2. MAXZIDE [Concomitant]
     Dosage: HALF TABLET, DAILY

REACTIONS (4)
  - ALOPECIA [None]
  - ARTHRALGIA [None]
  - FATIGUE [None]
  - HEADACHE [None]
